FAERS Safety Report 12121003 (Version 1)
Quarter: 2016Q1

REPORT INFORMATION
  Report Type: Spontaneous
  Country: US (occurrence: US)
  Receive Date: 20160226
  Receipt Date: 20160226
  Transmission Date: 20160526
  Serious: No
  Sender: FDA-Public Use
  Company Number: US-ALLERGAN-1116719US

PATIENT
  Age: 54 Year
  Sex: Female

DRUGS (1)
  1. REFRESH OPTIVE [Suspect]
     Active Substance: CARBOXYMETHYLCELLULOSE SODIUM\GLYCERIN
     Indication: SJOGREN^S SYNDROME
     Dosage: 2 GTT, TID
     Route: 047
     Dates: start: 20111219

REACTIONS (2)
  - Eye discharge [Unknown]
  - Hypersensitivity [Unknown]
